FAERS Safety Report 14823926 (Version 4)
Quarter: 2018Q2

REPORT INFORMATION
  Report Type: Report from Study
  Country: None (occurrence: CA)
  Receive Date: 20180428
  Receipt Date: 20180531
  Transmission Date: 20180711
  Serious: Yes (Other)
  Sender: FDA-Public Use
  Company Number: CA-ABBVIE-18K-028-2338436-00

PATIENT
  Sex: Female

DRUGS (1)
  1. HUMIRA [Suspect]
     Active Substance: ADALIMUMAB
     Indication: HIDRADENITIS
     Route: 058
     Dates: start: 20170726

REACTIONS (5)
  - Hidradenitis [Not Recovered/Not Resolved]
  - Pruritus [Unknown]
  - Uterine polyp [Recovered/Resolved]
  - Drug effect incomplete [Not Recovered/Not Resolved]
  - Pain [Unknown]
